FAERS Safety Report 6875604-7 (Version None)
Quarter: 2010Q3

REPORT INFORMATION
  Report Type: 
  Country: None (occurrence: None)
  Receive Date: 20100727
  Receipt Date: 20100716
  Transmission Date: 20110219
  Serious: Yes (Other)
  Sender: FDA-Public Use
  Company Number: JP-JNJFOC-20100702626

PATIENT
  Sex: Female

DRUGS (1)
  1. DOXIL [Suspect]
     Indication: CERVIX CARCINOMA
     Route: 042

REACTIONS (2)
  - ILEUS [None]
  - OFF LABEL USE [None]
